FAERS Safety Report 15127994 (Version 1)
Quarter: 2018Q3

REPORT INFORMATION
  Report Type: Spontaneous
  Country: US (occurrence: US)
  Receive Date: 20180710
  Receipt Date: 20180710
  Transmission Date: 20181010
  Serious: Yes (Hospitalization, Other)
  Sender: FDA-Public Use
  Company Number: US-UCBSA-2018029963

PATIENT
  Age: 43 Year
  Sex: Female

DRUGS (6)
  1. LEVOTHYROXINE. [Concomitant]
     Active Substance: LEVOTHYROXINE
     Indication: PRODUCT USED FOR UNKNOWN INDICATION
     Dosage: 50 MCG DAILY
     Route: 048
  2. AZATHIOPRINE. [Suspect]
     Active Substance: AZATHIOPRINE
     Indication: CROHN^S DISEASE
     Dosage: 50 MG DAILY
     Route: 048
  3. ONDANSETRON [Concomitant]
     Active Substance: ONDANSETRON
     Indication: PRODUCT USED FOR UNKNOWN INDICATION
     Dosage: 4 MG, AS NEEDED (PRN)
     Route: 048
  4. PANTOPRAZOLE [Concomitant]
     Active Substance: PANTOPRAZOLE
     Indication: ABDOMINAL PAIN UPPER
     Dosage: 40 MG, 2X/DAY (BID)
     Route: 048
  5. CERTOLIZUMAB PEGOL [Suspect]
     Active Substance: CERTOLIZUMAB PEGOL
     Indication: CROHN^S DISEASE
     Dosage: 400 MG, EV 4 WEEKS
     Route: 058
  6. PROMETHAZINE [Concomitant]
     Active Substance: PROMETHAZINE\PROMETHAZINE HYDROCHLORIDE
     Indication: PRODUCT USED FOR UNKNOWN INDICATION
     Dosage: UNK, AS NEEDED (PRN)

REACTIONS (1)
  - Drug-induced liver injury [Recovered/Resolved]
